FAERS Safety Report 9703434 (Version 1)
Quarter: 2013Q4

REPORT INFORMATION
  Report Type: Spontaneous
  Country: US (occurrence: None)
  Receive Date: 20131121
  Receipt Date: 20131121
  Transmission Date: 20140711
  Serious: Yes (Life-Threatening, Hospitalization)
  Sender: FDA-Public Use
  Company Number: None

PATIENT
  Age: 39 Year
  Sex: 0

DRUGS (1)
  1. TRIVORA [Suspect]
     Indication: CONTRACEPTION
     Route: 048

REACTIONS (2)
  - Myocardial infarction [None]
  - Cerebral thrombosis [None]
